FAERS Safety Report 5696630-X (Version None)
Quarter: 2008Q2

REPORT INFORMATION
  Report Type: 
  Country: None (occurrence: None)
  Receive Date: 20080408
  Receipt Date: 20061214
  Transmission Date: 20081010
  Serious: Yes (Other)
  Sender: FDA-Public Use
  Company Number: US-BAYER-US-2006-014271

PATIENT
  Age: 28 Year
  Sex: Female
  Weight: 103 kg

DRUGS (3)
  1. YASMIN [Suspect]
     Indication: ORAL CONTRACEPTION
     Route: 048
     Dates: start: 20060504, end: 20060518
  2. LEVOTHYROXINE SODIUM [Concomitant]
     Indication: HYPOTHYROIDISM
     Route: 048
     Dates: start: 20040101
  3. SPIRONOLACTONE [Concomitant]
     Indication: HIRSUTISM
     Dosage: UNIT DOSE: 100 MG
     Route: 048
     Dates: start: 20050729

REACTIONS (9)
  - ABDOMINAL PAIN [None]
  - CRYING [None]
  - DEPRESSION SUICIDAL [None]
  - FEELING ABNORMAL [None]
  - HEADACHE [None]
  - IRRITABILITY [None]
  - NAUSEA [None]
  - SCREAMING [None]
  - VOMITING [None]
